FAERS Safety Report 22175387 (Version 2)
Quarter: 2023Q2

REPORT INFORMATION
  Report Type: Spontaneous
  Country: CN (occurrence: CN)
  Receive Date: 20230405
  Receipt Date: 20230413
  Transmission Date: 20230721
  Serious: Yes (Other)
  Sender: FDA-Public Use
  Company Number: CN-002147023-NVSC2023CN074719

PATIENT
  Age: 26 Year

DRUGS (2)
  1. TEGRETOL [Suspect]
     Active Substance: CARBAMAZEPINE
     Indication: Epilepsy
     Dosage: 1.5 DOSAGE FORM, BID (1.5 TABLET EVERY MORNING AND 1.5 TABLET EVERY EVENING)
     Route: 048
     Dates: end: 202303
  2. TEGRETOL [Suspect]
     Active Substance: CARBAMAZEPINE
     Dosage: AGAIN STARTED FROM APR 2023
     Route: 065

REACTIONS (3)
  - Seizure [Recovering/Resolving]
  - Product availability issue [Unknown]
  - Wrong technique in product usage process [Unknown]

NARRATIVE: CASE EVENT DATE: 20230301
